FAERS Safety Report 25113986 (Version 1)
Quarter: 2025Q1

REPORT INFORMATION
  Report Type: Spontaneous
  Country: ES (occurrence: ES)
  Receive Date: 20250324
  Receipt Date: 20250324
  Transmission Date: 20250408
  Serious: Yes (Death, Other)
  Sender: JOHNSON AND JOHNSON
  Company Number: ES-JNJFOC-20250362482

PATIENT

DRUGS (2)
  1. TECVAYLI [Suspect]
     Active Substance: TECLISTAMAB-CQYV
     Indication: Plasma cell myeloma refractory
     Route: 065
  2. TALVEY [Suspect]
     Active Substance: TALQUETAMAB-TGVS
     Indication: Plasma cell myeloma refractory
     Route: 065

REACTIONS (8)
  - Plasma cell myeloma recurrent [Fatal]
  - Cytokine release syndrome [Unknown]
  - Capillary leak syndrome [Unknown]
  - Thrombocytopenia [Unknown]
  - Toxicity to various agents [Unknown]
  - Respiratory tract infection [Unknown]
  - Hypofibrinogenaemia [Unknown]
  - Anaemia [Unknown]
